FAERS Safety Report 8349329-5 (Version None)
Quarter: 2012Q2

REPORT INFORMATION
  Report Type: 
  Country: None (occurrence: None)
  Receive Date: 20120510
  Receipt Date: 20120508
  Transmission Date: 20120825
  Serious: Yes (Other)
  Sender: FDA-Public Use
  Company Number: PHHY2012CL034172

PATIENT
  Sex: Male
  Weight: 110 kg

DRUGS (1)
  1. GLEEVEC [Suspect]
     Indication: CHRONIC MYELOID LEUKAEMIA
     Dosage: 400 MG, UNK
     Route: 048
     Dates: start: 20040501

REACTIONS (3)
  - PAIN IN EXTREMITY [None]
  - SCIATICA [None]
  - INTERVERTEBRAL DISC PROTRUSION [None]
